FAERS Safety Report 9033849 (Version 1)
Quarter: 2013Q1

REPORT INFORMATION
  Report Type: Spontaneous
  Country: US (occurrence: US)
  Receive Date: 20130128
  Receipt Date: 20130128
  Transmission Date: 20140127
  Serious: Yes (Other)
  Sender: FDA-Public Use
  Company Number: US-AMGEN-USASP2012071374

PATIENT
  Age: 67 Year
  Sex: Female

DRUGS (2)
  1. ENBREL [Suspect]
     Indication: RHEUMATOID ARTHRITIS
     Dosage: 50 MG, QWK
     Dates: start: 20120901, end: 201210
  2. METHOTREXATE [Concomitant]
     Dosage: UNK
     Dates: start: 201210

REACTIONS (2)
  - Blindness unilateral [Not Recovered/Not Resolved]
  - Herpes zoster [Not Recovered/Not Resolved]
